FAERS Safety Report 6096419-6 (Version None)
Quarter: 2009Q1

REPORT INFORMATION
  Report Type: 
  Country: None (occurrence: None)
  Receive Date: 20090227
  Receipt Date: 20081215
  Transmission Date: 20090719
  Serious: No
  Sender: FDA-Public Use
  Company Number: A0760338A

PATIENT
  Age: 63 Year
  Sex: Female

DRUGS (6)
  1. LAMICTAL [Suspect]
     Indication: DEPRESSION
     Dosage: 75MG PER DAY
     Route: 048
     Dates: start: 20081010
  2. PROZAC [Concomitant]
     Dosage: 5MG PER DAY
  3. NORTRIPTYLINE HCL [Concomitant]
  4. ATIVAN [Concomitant]
     Dosage: 5MG PER DAY
  5. NEURONTIN [Concomitant]
     Dosage: 700MG PER DAY
  6. TRAZODONE HCL [Concomitant]
     Dosage: 25MG AT NIGHT

REACTIONS (2)
  - RASH [None]
  - THERAPEUTIC RESPONSE UNEXPECTED [None]
